FAERS Safety Report 15349838 (Version 1)
Quarter: 2018Q3

REPORT INFORMATION
  Report Type: Spontaneous
  Country: DE (occurrence: DE)
  Receive Date: 20180904
  Receipt Date: 20180904
  Transmission Date: 20181010
  Serious: Yes (Hospitalization)
  Sender: FDA-Public Use
  Company Number: PHHY2017DE204696

PATIENT
  Age: 40 Year
  Sex: Female
  Weight: 67 kg

DRUGS (3)
  1. DOCETAXEL. [Suspect]
     Active Substance: DOCETAXEL
     Indication: HER-2 POSITIVE BREAST CANCER
     Dosage: 75 MG/M2, UNK (21 DAY)
     Route: 042
     Dates: start: 20170612
  2. TRASTUZUMAB. [Suspect]
     Active Substance: TRASTUZUMAB
     Indication: HER-2 POSITIVE BREAST CANCER
     Dosage: 399 MG, UNK (21 DAY)
     Route: 042
     Dates: start: 20170522
  3. PERTUZUMAB. [Suspect]
     Active Substance: PERTUZUMAB
     Indication: HER-2 POSITIVE BREAST CANCER
     Dosage: 420 MG, UNK (21 DAY)
     Route: 042
     Dates: start: 20170522

REACTIONS (3)
  - Central nervous system necrosis [Recovered/Resolved]
  - Paraesthesia [Not Recovered/Not Resolved]
  - VIth nerve paralysis [Unknown]

NARRATIVE: CASE EVENT DATE: 20170720
